FAERS Safety Report 6305155-X (Version None)
Quarter: 2009Q3

REPORT INFORMATION
  Report Type: 
  Country: None (occurrence: None)
  Receive Date: 20090729
  Receipt Date: 20090610
  Transmission Date: 20100115
  Serious: No
  Sender: FDA-Public Use
  Company Number: WWISSUE-305

PATIENT
  Sex: Female

DRUGS (1)
  1. PROPYLTHIOURACIL [Suspect]

REACTIONS (3)
  - ABDOMINAL PAIN UPPER [None]
  - ALOPECIA [None]
  - VOMITING [None]
